FAERS Safety Report 17964803 (Version 1)
Quarter: 2020Q2

REPORT INFORMATION
  Report Type: Spontaneous
  Country: JP (occurrence: JP)
  Receive Date: 20200630
  Receipt Date: 20200630
  Transmission Date: 20200714
  Serious: Yes (Hospitalization, Other)
  Sender: FDA-Public Use
  Company Number: JP-AMGEN-JPNSP2020102847

PATIENT
  Sex: Male

DRUGS (1)
  1. REPATHA [Suspect]
     Active Substance: EVOLOCUMAB
     Indication: ACUTE CORONARY SYNDROME
     Dosage: 420 MILLIGRAM
     Route: 058
     Dates: start: 20200219, end: 2020

REACTIONS (1)
  - Enteritis infectious [Not Recovered/Not Resolved]

NARRATIVE: CASE EVENT DATE: 20200519
